FAERS Safety Report 22952741 (Version 4)
Quarter: 2023Q4

REPORT INFORMATION
  Report Type: Report from Study
  Country: CO (occurrence: CO)
  Receive Date: 20230918
  Receipt Date: 20231130
  Transmission Date: 20240110
  Serious: Yes (Life-Threatening, Hospitalization, Other)
  Sender: FDA-Public Use
  Company Number: CO-ABBVIE-5410868

PATIENT
  Sex: Male
  Weight: 77 kg

DRUGS (1)
  1. SKYRIZI [Suspect]
     Active Substance: RISANKIZUMAB-RZAA
     Indication: Psoriasis
     Dosage: FORM STRENGTH: 75 MILLIGRAMS.?THE NURSE TAKES BOX AND DEVICE.
     Route: 058
     Dates: start: 20220309, end: 20230714

REACTIONS (20)
  - Aortic dilatation [Not Recovered/Not Resolved]
  - Cardiac discomfort [Not Recovered/Not Resolved]
  - Venous occlusion [Not Recovered/Not Resolved]
  - Arrhythmia [Not Recovered/Not Resolved]
  - Cardiac dysfunction [Not Recovered/Not Resolved]
  - Generalised oedema [Not Recovered/Not Resolved]
  - Chest pain [Not Recovered/Not Resolved]
  - Chest discomfort [Not Recovered/Not Resolved]
  - Intensive care [Not Recovered/Not Resolved]
  - Vasodilatation [Not Recovered/Not Resolved]
  - Myocardial infarction [Not Recovered/Not Resolved]
  - Post procedural complication [Not Recovered/Not Resolved]
  - Wound secretion [Not Recovered/Not Resolved]
  - Sternal injury [Not Recovered/Not Resolved]
  - Productive cough [Recovering/Resolving]
  - Poor quality sleep [Not Recovered/Not Resolved]
  - Cough [Not Recovered/Not Resolved]
  - Revascularisation procedure [Unknown]
  - Cardiac operation [Unknown]
  - Cardiac operation [Recovered/Resolved]

NARRATIVE: CASE EVENT DATE: 20230101
